FAERS Safety Report 8066849-1 (Version None)
Quarter: 2012Q1

REPORT INFORMATION
  Report Type: 
  Country: None (occurrence: None)
  Receive Date: 20120124
  Receipt Date: 20120118
  Transmission Date: 20120608
  Serious: Yes (Other)
  Sender: FDA-Public Use
  Company Number: NO-ROCHE-1031799

PATIENT
  Sex: Male

DRUGS (4)
  1. PREDNISOLONE [Concomitant]
  2. MABTHERA [Suspect]
     Indication: WALDENSTROM'S MACROGLOBULINAEMIA
     Route: 042
  3. ONCOVIN [Concomitant]
  4. CYCLOPHOSPHAMIDE [Concomitant]

REACTIONS (3)
  - NEUROLOGICAL SYMPTOM [None]
  - INFLUENZA LIKE ILLNESS [None]
  - MONONEUROPATHY MULTIPLEX [None]
